FAERS Safety Report 10190204 (Version 1)
Quarter: 2014Q2

REPORT INFORMATION
  Report Type: Spontaneous
  Country: CN (occurrence: CN)
  Receive Date: 20140522
  Receipt Date: 20140522
  Transmission Date: 20141212
  Serious: Yes (Other)
  Sender: FDA-Public Use
  Company Number: CN-B.I. PHARMACEUTICALS,INC./RIDGEFIELD-2014-BI-22686YA

PATIENT
  Sex: Male
  Weight: 40 kg

DRUGS (3)
  1. HARNAL [Suspect]
     Indication: BENIGN PROSTATIC HYPERPLASIA
     Dosage: 0.2 MG
     Route: 048
     Dates: start: 20131101, end: 20131128
  2. HARNAL [Suspect]
     Indication: DYSURIA
  3. FINASTERIDE [Concomitant]
     Route: 065
     Dates: start: 20131101

REACTIONS (1)
  - Oedema peripheral [Recovered/Resolved]
